FAERS Safety Report 17228669 (Version 1)
Quarter: 2020Q1

REPORT INFORMATION
  Report Type: Spontaneous
  Country: CH (occurrence: CH)
  Receive Date: 20200103
  Receipt Date: 20200103
  Transmission Date: 20200409
  Serious: Yes (Other)
  Sender: FDA-Public Use
  Company Number: CH-PFIZER INC-2019560245

PATIENT
  Age: 87 Year
  Sex: Female

DRUGS (22)
  1. TORASEM [Suspect]
     Active Substance: TORSEMIDE
     Dosage: 5 MG, 2X/DAY
     Dates: start: 20190618
  2. ESOMEPRAZOL HELVEPHARM [Suspect]
     Active Substance: ESOMEPRAZOLE MAGNESIUM
     Dosage: 20 MG, 1X/DAY
     Route: 048
     Dates: start: 20190206
  3. METOPROLOL ACTAVIS [METOPROLOL TARTRATE] [Suspect]
     Active Substance: METOPROLOL TARTRATE
     Dosage: 50 MG, 1X/DAY
     Dates: start: 20180321
  4. FLATULEX [SIMETICONE] [Concomitant]
     Dosage: UNK
     Dates: start: 201909, end: 201910
  5. AMLODIPINE BESILATE [Suspect]
     Active Substance: AMLODIPINE BESYLATE
     Dosage: 5 MG, DAILY
     Dates: start: 20171010
  6. IRFEN [Suspect]
     Active Substance: IBUPROFEN
     Dosage: AS NECESSARY
     Dates: start: 20171003
  7. XARELTO [Suspect]
     Active Substance: RIVAROXABAN
     Dosage: 10 MG, 1X/DAY
     Dates: start: 20180417
  8. DAFALGAN [Suspect]
     Active Substance: ACETAMINOPHEN
     Dosage: AS NECESSARY
     Dates: start: 20190627
  9. BEXINE [DEXAMETHASONE;NEOMYCIN;PHENYLEPHRINE] [Suspect]
     Active Substance: DEXAMETHASONE\NEOMYCIN\PHENYLEPHRINE
     Dosage: UNK UNK, AS NEEDED
     Dates: start: 20190723
  10. GAVISCON [CALCIUM CARBONATE;SODIUM ALGINATE;SODIUM BICARBONATE] [Concomitant]
     Dosage: UNK
     Dates: start: 20190322
  11. CLOBEX [CLOBETASOL PROPIONATE] [Concomitant]
     Dosage: UNK
  12. DUSPATALIN [MEBEVERINE HYDROCHLORIDE] [Suspect]
     Active Substance: MEBEVERINE HYDROCHLORIDE
     Dosage: 200 MG, 3X/DAY
     Dates: start: 20190212
  13. DOSPIR [Suspect]
     Active Substance: ALBUTEROL SULFATE\IPRATROPIUM BROMIDE
     Dosage: UNK
     Dates: start: 20190723
  14. ADALAT [Concomitant]
     Active Substance: NIFEDIPINE
     Indication: HYPERTENSIVE CRISIS
     Dosage: UNK
     Dates: start: 2019, end: 2019
  15. ANTIDRY LOTION [Concomitant]
     Dosage: UNK
     Dates: start: 20170117
  16. TEMESTA EXPIDET [Suspect]
     Active Substance: LORAZEPAM
     Dosage: AS NECESSARY
     Dates: start: 20190326
  17. VI-DE 3 [Concomitant]
     Active Substance: CHOLECALCIFEROL
     Dosage: UNK
     Dates: start: 20180321
  18. NACL [Concomitant]
     Active Substance: SODIUM CHLORIDE
     Dosage: UNK
     Dates: start: 201804
  19. DISTRANEURINE [CLOMETHIAZOLE] [Suspect]
     Active Substance: CLOMETHIAZOLE
     Dosage: AS NECESSARY
     Dates: start: 20181218
  20. DER-MED [Concomitant]
     Dosage: UNK
     Dates: start: 20161210
  21. TRANSIPEG [MACROGOL 3350;POTASSIUM CHLORIDE;SODIUM BICARBONATE;SODIUM [Concomitant]
     Dosage: AS NECESSARY
     Dates: start: 20190326
  22. TEMESTA (LORAZEPAM) [Suspect]
     Active Substance: LORAZEPAM
     Dosage: 1 MG, 1X/DAY
     Dates: start: 20190702

REACTIONS (1)
  - Dermatitis bullous [Not Recovered/Not Resolved]

NARRATIVE: CASE EVENT DATE: 201909
